FAERS Safety Report 17053285 (Version 3)
Quarter: 2020Q1

REPORT INFORMATION
  Report Type: Spontaneous
  Country: US (occurrence: US)
  Receive Date: 20191120
  Receipt Date: 20200127
  Transmission Date: 20200409
  Serious: Yes (Other)
  Sender: FDA-Public Use
  Company Number: US-PFIZER INC-2019499561

PATIENT
  Age: 26 Year
  Sex: Male
  Weight: 78.91 kg

DRUGS (13)
  1. ZYVOX [Suspect]
     Active Substance: LINEZOLID
     Indication: TUBERCULOSIS
     Dosage: 600 MG, 1X/DAY
     Route: 048
  2. GABAPENTIN. [Concomitant]
     Active Substance: GABAPENTIN
     Dosage: 300 MG, 3X/DAY
     Route: 048
  3. BEDAQUILINE [Concomitant]
     Active Substance: BEDAQUILINE
     Dosage: UNK
  4. BEDAQUILINE FUMARATE [Concomitant]
     Active Substance: BEDAQUILINE FUMARATE
     Dosage: 200 MG, UNK (2 TABLETS WITH FOOD ORALLY THREE TIMES A WEEK)
     Route: 048
  5. AMITRIPTYLINE HCL [Concomitant]
     Active Substance: AMITRIPTYLINE
     Dosage: 25 MG, 2X/DAY
     Route: 048
  6. VITAMIN B12 [Concomitant]
     Active Substance: CYANOCOBALAMIN
     Dosage: UNK
  7. CAPREOMYCIN SULFATE. [Concomitant]
     Active Substance: CAPREOMYCIN SULFATE
     Dosage: 1 G, 1X/DAY
  8. AMITRIPTYLINE HCL [Concomitant]
     Active Substance: AMITRIPTYLINE
     Dosage: 50 MG, AT NIGHT
     Route: 048
  9. GABAPENTIN. [Concomitant]
     Active Substance: GABAPENTIN
     Dosage: 300 MG, 4X/DAY (1 IN AM, 1 CAPSULE IN AFTERNOON, 2 AT NIGHT )
     Route: 048
  10. CYCLOSERINE. [Concomitant]
     Active Substance: CYCLOSERINE
     Dosage: UNK
  11. MOXIFLOXACIN HCL [Suspect]
     Active Substance: MOXIFLOXACIN
     Indication: TUBERCULOSIS
     Dosage: 400 MG, 1X/DAY
     Route: 048
  12. PYRIDOXINE HCL [Concomitant]
     Active Substance: PYRIDOXINE HYDROCHLORIDE
     Dosage: 100 MG, 1X/DAY
     Route: 048
  13. CAPREOMYCIN [Concomitant]
     Active Substance: CAPREOMYCIN
     Dosage: UNK

REACTIONS (15)
  - Sleep disorder [Not Recovered/Not Resolved]
  - Off label use [Unknown]
  - Hypoaesthesia [Unknown]
  - Blood creatinine increased [Recovered/Resolved]
  - Loss of personal independence in daily activities [Unknown]
  - Haemoglobin decreased [Recovering/Resolving]
  - Product use in unapproved indication [Unknown]
  - Neuropathy peripheral [Recovering/Resolving]
  - Pain [Not Recovered/Not Resolved]
  - Paraesthesia [Recovering/Resolving]
  - Gait disturbance [Unknown]
  - Nausea [Unknown]
  - Burning sensation [Unknown]
  - Impaired gastric emptying [Unknown]
  - Balance disorder [Unknown]

NARRATIVE: CASE EVENT DATE: 2018
